FAERS Safety Report 10869894 (Version 1)
Quarter: 2015Q1

REPORT INFORMATION
  Report Type: Spontaneous
  Country: US (occurrence: US)
  Receive Date: 20150226
  Receipt Date: 20150226
  Transmission Date: 20150721
  Serious: No
  Sender: FDA-Public Use
  Company Number: US-PFIZER INC-2015067530

PATIENT
  Age: 67 Year
  Sex: Female

DRUGS (2)
  1. HYDROCODONE [Suspect]
     Active Substance: HYDROCODONE
  2. LYRICA [Suspect]
     Active Substance: PREGABALIN

REACTIONS (1)
  - Drug hypersensitivity [Unknown]
